FAERS Safety Report 16566038 (Version 2)
Quarter: 2020Q4

REPORT INFORMATION
  Report Type: Spontaneous
  Country: CA (occurrence: CA)
  Receive Date: 20190712
  Receipt Date: 20201116
  Transmission Date: 20210113
  Serious: Yes (Hospitalization)
  Sender: FDA-Public Use
  Company Number: CA-PFIZER INC-2019293348

PATIENT
  Sex: Female

DRUGS (11)
  1. BUPRENORPHINE/NALOXONE [Suspect]
     Active Substance: BUPRENORPHINE\NALOXONE
     Dosage: 8 MG, 3X/DAY
     Route: 064
  2. NICOTINE. [Suspect]
     Active Substance: NICOTINE
     Indication: SMOKING CESSATION THERAPY
     Dosage: 1 DF, 1X/DAY
     Route: 064
  3. BUPRENORPHINE HYDROCHLORIDE. [Suspect]
     Active Substance: BUPRENORPHINE HYDROCHLORIDE
     Indication: DRUG DEPENDENCE
     Dosage: 3 DF, 1X/DAY
     Route: 064
  4. MOBICOX [Suspect]
     Active Substance: MELOXICAM
     Dosage: 15 MG, 1X/DAY
     Route: 064
  5. BUPRENORPHINE/NALOXONE [Suspect]
     Active Substance: BUPRENORPHINE\NALOXONE
     Indication: DRUG DEPENDENCE
     Dosage: 3 DF, 1X/DAY
     Route: 064
  6. VENLAFAXINE HCL [Suspect]
     Active Substance: VENLAFAXINE HYDROCHLORIDE
     Dosage: 37.5 MG, 1X/DAY
     Route: 064
  7. BUPRENORPHINE HYDROCHLORIDE. [Suspect]
     Active Substance: BUPRENORPHINE HYDROCHLORIDE
     Dosage: 8 MG, 3X/DAY
     Route: 064
  8. DOXEPIN [Suspect]
     Active Substance: DOXEPIN
     Dosage: 1 DF, 1X/DAY
     Route: 064
  9. DOXEPIN [Suspect]
     Active Substance: DOXEPIN
     Dosage: 15 MG, 1X/DAY
     Route: 064
  10. NICOTINE. [Suspect]
     Active Substance: NICOTINE
     Dosage: UNK, 1X/DAY
     Route: 064
  11. MOBICOX [Suspect]
     Active Substance: MELOXICAM
     Dosage: 1 DF, 1X/DAY

REACTIONS (3)
  - Drug withdrawal syndrome neonatal [Unknown]
  - Foetal exposure during pregnancy [Unknown]
  - Jaundice neonatal [Unknown]
